FAERS Safety Report 9376288 (Version 1)
Quarter: 2013Q3

REPORT INFORMATION
  Report Type: Spontaneous
  Country: DE (occurrence: DE)
  Receive Date: 20130701
  Receipt Date: 20130701
  Transmission Date: 20140515
  Serious: Yes (Congenital Anomaly, Other)
  Sender: FDA-Public Use
  Company Number: GXKR2013DE002225

PATIENT
  Sex: Female
  Weight: 2.64 kg

DRUGS (4)
  1. MIRTAZAPINE [Suspect]
     Dosage: MATERNAL DOSE (0.- 6. GESTATIONAL WEEK): 0.5MG/DAY
     Route: 064
  2. BISOPROLOL [Suspect]
     Dosage: MATERNAL DOSE (0.- 6. GESTATIONAL WEEK): 2X0.5MG/DAY
     Route: 064
  3. METOPROLOL [Suspect]
     Dosage: MATERNAL DOSE (6.-38. GESTATIONAL WEEK): 47.5MG/DAY
     Route: 064
  4. FOLIC ACID [Concomitant]
     Dosage: MATERNAL DOSE (0.-38. GESTATIONAL WEEK): 0.4MG/DAY
     Route: 064

REACTIONS (4)
  - Renal aplasia [Not Recovered/Not Resolved]
  - Congenital hydronephrosis [Unknown]
  - Low birth weight baby [Unknown]
  - Foetal exposure during pregnancy [Unknown]
